FAERS Safety Report 7130556-X (Version None)
Quarter: 2010Q4

REPORT INFORMATION
  Report Type: 
  Country: None (occurrence: None)
  Receive Date: 20101201
  Receipt Date: 20101123
  Transmission Date: 20110411
  Serious: Yes (Death, Hospitalization, Other)
  Sender: FDA-Public Use
  Company Number: ES-JNJFOC-20101108283

PATIENT
  Age: 19 Year
  Sex: Female
  Weight: 75 kg

DRUGS (3)
  1. TOPIRAMATE [Suspect]
     Indication: ILL-DEFINED DISORDER
     Dosage: 200 MG IN THE MORNING AND 100 MG IN THE NIGHT
     Route: 048
  2. VENLAFAXINE [Concomitant]
     Indication: ILL-DEFINED DISORDER
     Route: 065
  3. QUETIAPINE [Concomitant]
     Indication: ILL-DEFINED DISORDER
     Route: 065

REACTIONS (15)
  - ABNORMAL BEHAVIOUR [None]
  - ASPIRATION BRONCHIAL [None]
  - BRAIN OEDEMA [None]
  - CARDIOPULMONARY FAILURE [None]
  - COMA SCALE ABNORMAL [None]
  - ELECTROCARDIOGRAM QT PROLONGED [None]
  - GRAND MAL CONVULSION [None]
  - HYPOXIA [None]
  - METABOLIC ACIDOSIS [None]
  - NOSOCOMIAL INFECTION [None]
  - OVERDOSE [None]
  - PYREXIA [None]
  - RESPIRATORY DISORDER [None]
  - RHABDOMYOLYSIS [None]
  - TACHYCARDIA [None]
